FAERS Safety Report 7513630-5 (Version None)
Quarter: 2011Q2

REPORT INFORMATION
  Report Type: 
  Country: None (occurrence: None)
  Receive Date: 20110531
  Receipt Date: 20110509
  Transmission Date: 20111010
  Serious: Yes (Hospitalization, Other)
  Sender: FDA-Public Use
  Company Number: US-BAYER-2011-017068

PATIENT
  Age: 45 Year
  Sex: Female
  Weight: 83.9 kg

DRUGS (3)
  1. YAZ [Suspect]
     Indication: PRODUCT USED FOR UNKNOWN INDICATION
     Dates: start: 20071210, end: 20080301
  2. EFFEXOR [Concomitant]
  3. YAZ [Suspect]
     Indication: PREMENSTRUAL SYNDROME

REACTIONS (3)
  - INJURY [None]
  - PAIN [None]
  - DEEP VEIN THROMBOSIS [None]
